FAERS Safety Report 4323721-8 (Version None)
Quarter: 2004Q1

REPORT INFORMATION
  Report Type: 
  Country: None (occurrence: None)
  Receive Date: 20040323
  Receipt Date: 20040308
  Transmission Date: 20041129
  Serious: Yes (Hospitalization)
  Sender: FDA-Public Use
  Company Number: S04-AUS-01156-01

PATIENT
  Age: 26 Year

DRUGS (2)
  1. LEXAPRO [Suspect]
  2. ALPRAZOLAM [Suspect]
     Dosage: 0.25 MG PO
     Route: 048

REACTIONS (3)
  - BLOOD UREA DECREASED [None]
  - ELECTROCARDIOGRAM QT PROLONGED [None]
  - OVERDOSE [None]
